FAERS Safety Report 8716903 (Version 4)
Quarter: 2012Q4

REPORT INFORMATION
  Report Type: Spontaneous
  Country: DK (occurrence: None)
  Receive Date: 20120725
  Receipt Date: 20121010
  Transmission Date: 20130627
  Serious: Yes (Hospitalization, Other)
  Sender: FDA-Public Use
  Company Number: AUR-APL-2012-03180

PATIENT
  Age: 65 Year
  Sex: Male

DRUGS (1)
  1. METFORMIN HYDROCHLORIDE [Suspect]
     Indication: PRODUCT USED FOR UNKNOWN INDICATION
     Dosage: 3 G/DAY

REACTIONS (9)
  - Lactic acidosis [None]
  - Haemodialysis [None]
  - Diarrhoea [None]
  - Vomiting [None]
  - Abdominal pain [None]
  - Hypotension [None]
  - Sepsis [None]
  - Anuria [None]
  - Haemodynamic instability [None]
